FAERS Safety Report 7115574-X (Version None)
Quarter: 2010Q4

REPORT INFORMATION
  Report Type: 
  Country: None (occurrence: None)
  Receive Date: 20101117
  Receipt Date: 20101117
  Transmission Date: 20110411
  Serious: Yes (Other)
  Sender: FDA-Public Use
  Company Number: None

PATIENT
  Sex: Female
  Weight: 46.8 kg

DRUGS (2)
  1. CHLORTHALIDONE [Suspect]
     Indication: HYPERTENSION
     Dosage: CHORTHALIDONE 25 MG TABLET 1 Q.D 047
     Route: 048
     Dates: start: 20101007
  2. CHLORTHALIDONE [Suspect]
     Indication: HYPERTENSION
     Dosage: CHORTHALIDONE 25 MG TABLET 1 Q.D 047
     Route: 048
     Dates: start: 20101008

REACTIONS (1)
  - BALANCE DISORDER [None]
